FAERS Safety Report 6560495 (Version 4)
Quarter: 2015Q1

REPORT INFORMATION
  Report Type: Report from Study
  Country: JP (occurrence: JP)
  Receive Date: 20080225
  Receipt Date: 20150101
  Transmission Date: 20150721
  Serious: Yes (Hospitalization)
  Sender: FDA-Public Use
  Company Number: JP-ROCHE-543874

PATIENT
  Age: 46 Year
  Sex: Male
  Weight: 77.8 kg

DRUGS (7)
  1. LOXOPROFEN SODIUM [Suspect]
     Active Substance: LOXOPROFEN SODIUM
     Indication: CANCER PAIN
     Route: 065
     Dates: start: 20071215, end: 20080129
  2. VALSARTAN. [Concomitant]
     Active Substance: VALSARTAN
     Route: 065
  3. CAPECITABINE. [Suspect]
     Active Substance: CAPECITABINE
     Indication: METASTATIC GASTRIC CANCER
     Dosage: FREQUENCY REPORTED AS D1-14Q3W. DATE OF LAST DOSE PRIOR TO SAE 22 JAN 2008. ROUTE REPORTED AS: BID +
     Route: 048
     Dates: start: 20071217, end: 20080122
  4. CISPLATIN. [Suspect]
     Active Substance: CISPLATIN
     Indication: METASTATIC GASTRIC CANCER
     Dosage: FREQUENCY REPORTED AS D1Q3W. DOSAGE FORM REPORTED AS INFUSION. DATE OF LAST DOSE PRIOR TO SAE 08 JA+
     Route: 042
     Dates: start: 20071217, end: 20080108
  5. BEVACIZUMAB [Suspect]
     Active Substance: BEVACIZUMAB
     Indication: GASTRIC CANCER
     Dosage: FREQUENCY REPORTED AS D1Q3W. DOSAGE FORM REPORTED AS INFUSION. DATE OF LAST DOSE PRIOR TO SAE 08 JA+
     Route: 042
     Dates: start: 20071217, end: 20080108
  6. BENIDIPINE HYDROCHLORIDE [Concomitant]
     Active Substance: BENIDIPINE HYDROCHLORIDE
     Route: 065
  7. NERIPROCT [Concomitant]
     Route: 065

REACTIONS (3)
  - Tumour necrosis [Recovering/Resolving]
  - Gastric perforation [Recovered/Resolved]
  - Peritonitis [Recovered/Resolved]

NARRATIVE: CASE EVENT DATE: 20080128
